FAERS Safety Report 14488421 (Version 1)
Quarter: 2018Q1

REPORT INFORMATION
  Report Type: Report from Study
  Country: DE (occurrence: DE)
  Receive Date: 20180205
  Receipt Date: 20180205
  Transmission Date: 20180509
  Serious: Yes (Death)
  Sender: FDA-Public Use
  Company Number: DE-TEVA-2018-DE-852458

PATIENT
  Age: 49 Year
  Sex: Male
  Weight: 110 kg

DRUGS (12)
  1. DEXAMETHASON [Concomitant]
     Active Substance: DEXAMETHASONE
     Dosage: 8 MILLIGRAM DAILY;
     Route: 048
     Dates: start: 20141118, end: 20141214
  2. DEXAMETHASON [Concomitant]
     Active Substance: DEXAMETHASONE
     Route: 048
     Dates: start: 20141114, end: 20141118
  3. FOLINIC ACID [Concomitant]
     Active Substance: LEUCOVORIN
     Indication: COLORECTAL CANCER
     Dates: start: 20141118, end: 20141202
  4. L-THYROXIN [Concomitant]
     Active Substance: LEVOTHYROXINE SODIUM
     Indication: HYPOTHYROIDISM
     Dosage: 75 MICROGRAM DAILY;
     Route: 048
     Dates: start: 20141114, end: 20141214
  5. GUTTALAX [Concomitant]
     Indication: CONSTIPATION
     Route: 048
     Dates: start: 20141202, end: 20141214
  6. RAMIPRIL. [Concomitant]
     Active Substance: RAMIPRIL
     Indication: HYPERTENSION
     Dosage: 5 MILLIGRAM DAILY;
     Route: 048
     Dates: start: 20141114, end: 20141214
  7. LOPERAMID [Concomitant]
     Active Substance: LOPERAMIDE
     Route: 048
     Dates: start: 20141118, end: 20141214
  8. 5-FLUOROURACIL [Concomitant]
     Active Substance: FLUOROURACIL
     Dates: start: 20141202, end: 20141204
  9. OXALIPLATIN. [Suspect]
     Active Substance: OXALIPLATIN
     Indication: COLORECTAL CANCER
     Route: 065
     Dates: start: 20141118, end: 20141202
  10. AVASTIN [Suspect]
     Active Substance: BEVACIZUMAB
     Indication: COLORECTAL CANCER METASTATIC
     Dosage: ON 02/DEC/2014, HE RECEIVED LAST DOSE OF BEVACIZUMAB BEFORE THE EVENTS.
     Route: 065
     Dates: start: 20141202, end: 20141202
  11. AVASTIN [Suspect]
     Active Substance: BEVACIZUMAB
     Route: 065
     Dates: start: 20141118, end: 20141118
  12. 5-FLUOROURACIL [Concomitant]
     Active Substance: FLUOROURACIL
     Indication: COLORECTAL CANCER
     Dates: start: 20141118, end: 20141120

REACTIONS (6)
  - Acute hepatic failure [Fatal]
  - Dry mouth [Recovered/Resolved]
  - Sleep disorder [Unknown]
  - Constipation [Recovered/Resolved]
  - Renal failure [Fatal]
  - Jaundice [Not Recovered/Not Resolved]

NARRATIVE: CASE EVENT DATE: 20141118
